FAERS Safety Report 9399183 (Version 2)
Quarter: 2013Q3

REPORT INFORMATION
  Report Type: Spontaneous
  Country: CO (occurrence: CO)
  Receive Date: 20130715
  Receipt Date: 20130816
  Transmission Date: 20140515
  Serious: Yes (Hospitalization, Other)
  Sender: FDA-Public Use
  Company Number: CO-AMGEN-COLSP2013048862

PATIENT
  Age: 64 Year
  Sex: Male

DRUGS (15)
  1. ENBREL [Suspect]
     Indication: RHEUMATOID ARTHRITIS
     Dosage: 50 MG, WEEKLY
     Route: 058
     Dates: start: 201301, end: 20130530
  2. METHOTREXATE [Concomitant]
     Indication: RHEUMATOID ARTHRITIS
     Dosage: 3 TABLETS OF 2.5MG ON SATURDAY AND 2 TABLETS OF 2.5MG ON SUNDAY, WEEKLY
     Route: 048
     Dates: start: 1998
  3. METHOTREXATE [Concomitant]
     Dosage: 3 TABLETS OF 2.5MG ON SATURDAY AND 2 TABLETS OF 2.5MG ON SUNDAY, WEEKLY
     Route: 048
     Dates: start: 2010
  4. OMEPRAZOL                          /00661201/ [Concomitant]
     Indication: PROPHYLAXIS
     Dosage: 20 MG, 1X/DAY
     Route: 048
     Dates: start: 2008
  5. LEVOTHYROXINE [Concomitant]
     Indication: HYPOTHYROIDISM
     Dosage: 50 MCG, 1X/DAY
     Route: 048
     Dates: start: 2008
  6. FOLIC ACID [Concomitant]
     Indication: RHEUMATOID ARTHRITIS
     Dosage: 1 MG, 1X/DAY
     Route: 048
     Dates: start: 2011
  7. ABBOTT CALCI [Concomitant]
     Indication: RHEUMATOID ARTHRITIS
     Dosage: 600 MG, 1X/DAY
     Route: 048
     Dates: start: 2011
  8. ASA [Concomitant]
     Indication: RHEUMATOID ARTHRITIS
     Dosage: 100 MG, 1X/DAY
     Route: 048
     Dates: start: 2012
  9. COMPLEJO B                         /01418901/ [Concomitant]
     Indication: RHEUMATOID ARTHRITIS
     Dosage: UNK
     Route: 048
     Dates: start: 2012
  10. THIAMINE [Concomitant]
     Indication: RHEUMATOID ARTHRITIS
     Dosage: 300 MG, 1X/DAY
     Route: 048
     Dates: start: 2012
  11. THIAMINE [Concomitant]
     Dosage: 300 MG, 1X/DAY
     Route: 048
     Dates: start: 201302
  12. ACETAMINOPHEN W/CODEINE [Concomitant]
     Indication: PAIN
     Dosage: 500/30MG, 2X/DAY
     Route: 048
     Dates: start: 20130630
  13. SULFASALAZINE [Concomitant]
     Indication: RHEUMATOID ARTHRITIS
     Dosage: 500 MG, 1X/DAY
     Route: 048
     Dates: start: 201303
  14. SULFASALAZINE [Concomitant]
     Dosage: 500 MG, 1X/DAY
     Route: 048
     Dates: start: 2011
  15. ACETAMINOPHEN [Concomitant]
     Indication: PAIN
     Dosage: 500 MG, 3X/DAY
     Route: 048

REACTIONS (7)
  - Arthropathy [Not Recovered/Not Resolved]
  - Micturition disorder [Recovered/Resolved]
  - Decubitus ulcer [Recovered/Resolved]
  - Blood pressure decreased [Recovered/Resolved]
  - Oxygen saturation decreased [Recovered/Resolved]
  - Inflammation [Recovered/Resolved]
  - Wound infection bacterial [Recovered/Resolved]
